FAERS Safety Report 8259230-3 (Version None)
Quarter: 2012Q2

REPORT INFORMATION
  Report Type: 
  Country: None (occurrence: None)
  Receive Date: 20120404
  Receipt Date: 20120326
  Transmission Date: 20120825
  Serious: Yes (Other)
  Sender: FDA-Public Use
  Company Number: US-ASTRAZENECA-2012SE07925

PATIENT
  Age: 59 Year
  Sex: Female

DRUGS (2)
  1. NEXIUM [Concomitant]
     Route: 048
  2. CRESTOR [Suspect]
     Route: 048

REACTIONS (5)
  - HYPOACUSIS [None]
  - MENINGITIS [None]
  - LOCALISED INFECTION [None]
  - MALAISE [None]
  - RENAL DISORDER [None]
